FAERS Safety Report 8696794 (Version 2)
Quarter: 2012Q4

REPORT INFORMATION
  Report Type: 
  Country: US (occurrence: US)
  Receive Date: 20120801
  Receipt Date: 20121130
  Transmission Date: 20130627
  Serious: Yes (Hospitalization)
  Sender: FDA-Public Use
  Company Number: US-JNJFOC-20120712514

PATIENT
  Age: 57 Year
  Sex: Female
  Weight: 69.4 kg

DRUGS (7)
  1. LEVAQUIN [Suspect]
     Indication: DIVERTICULITIS
     Route: 042
     Dates: start: 20120607, end: 20120607
  2. URSODIOL [Concomitant]
     Indication: LIVER DISORDER
     Route: 048
     Dates: start: 2007
  3. VALTRAN [Concomitant]
     Indication: HYPERTENSION
     Route: 048
     Dates: start: 2011
  4. UNKNOWN MEDICATION [Concomitant]
     Route: 065
  5. PREMARIN [Concomitant]
     Indication: HORMONE LEVEL ABNORMAL
     Dosage: 0.625
     Route: 065
  6. DEXILANT [Concomitant]
     Indication: IMPAIRED GASTRIC EMPTYING
     Route: 065
  7. ZETIA [Concomitant]
     Indication: BLOOD CHOLESTEROL INCREASED
     Route: 065

REACTIONS (3)
  - Anaphylactic reaction [Recovering/Resolving]
  - Drug prescribing error [Recovered/Resolved]
  - Post-traumatic stress disorder [Unknown]
